FAERS Safety Report 5509754-4 (Version None)
Quarter: 2007Q4

REPORT INFORMATION
  Report Type: 
  Country: None (occurrence: None)
  Receive Date: 20071107
  Receipt Date: 20071107
  Transmission Date: 20080405
  Serious: Yes (Hospitalization)
  Sender: FDA-Public Use
  Company Number: None

PATIENT
  Sex: Female
  Weight: 77.5 kg

DRUGS (3)
  1. XELODA [Suspect]
     Dosage: 24000 MG
  2. NAVELBINE [Suspect]
     Dosage: 47 MG
  3. HERCEPTIN [Suspect]
     Dosage: 465 MG

REACTIONS (6)
  - ANOREXIA [None]
  - DEHYDRATION [None]
  - LETHARGY [None]
  - NAUSEA [None]
  - NEUTROPHIL COUNT DECREASED [None]
  - PYREXIA [None]
